FAERS Safety Report 23708946 (Version 2)
Quarter: 2024Q2

REPORT INFORMATION
  Report Type: Report from Study
  Country: US (occurrence: US)
  Receive Date: 20240404
  Receipt Date: 20240520
  Transmission Date: 20240716
  Serious: Yes (Other)
  Sender: FDA-Public Use
  Company Number: US-OTSUKA-2024_002345

PATIENT
  Age: 28 Year
  Sex: Female
  Weight: 74.38 kg

DRUGS (8)
  1. TOLVAPTAN [Suspect]
     Active Substance: TOLVAPTAN
     Indication: Congenital cystic kidney disease
     Dosage: UNK
     Route: 065
     Dates: start: 20220923
  2. TOLVAPTAN [Suspect]
     Active Substance: TOLVAPTAN
     Dosage: 90 MG
     Route: 065
     Dates: start: 20240126
  3. TOLVAPTAN [Suspect]
     Active Substance: TOLVAPTAN
     Dosage: 15 MG
     Route: 065
     Dates: start: 20240126
  4. TOLVAPTAN [Suspect]
     Active Substance: TOLVAPTAN
     Dosage: 30 MG (IN AM)
     Route: 065
     Dates: start: 20240312
  5. TOLVAPTAN [Suspect]
     Active Substance: TOLVAPTAN
     Dosage: 15 MG(PM 8 HOUR LATER)
     Route: 065
     Dates: start: 20240312
  6. LOSARTAN POTASSIUM [Concomitant]
     Active Substance: LOSARTAN POTASSIUM
     Indication: Product used for unknown indication
     Dosage: 50 MG, QD
     Route: 048
  7. LOSARTAN POTASSIUM [Concomitant]
     Active Substance: LOSARTAN POTASSIUM
     Dosage: 25 MG, QD
     Route: 048
  8. SODIUM BICARBONATE [Concomitant]
     Active Substance: SODIUM BICARBONATE
     Indication: Product used for unknown indication
     Dosage: 650 MG, TID
     Route: 065
     Dates: start: 20230921

REACTIONS (8)
  - Renal impairment [Unknown]
  - Carbon dioxide decreased [Unknown]
  - Blood glucose decreased [Unknown]
  - Blood urea increased [Unknown]
  - Blood creatinine increased [Not Recovered/Not Resolved]
  - Glomerular filtration rate decreased [Unknown]
  - Underdose [Unknown]
  - Product prescribing error [Unknown]

NARRATIVE: CASE EVENT DATE: 20240126
